FAERS Safety Report 19427429 (Version 1)
Quarter: 2021Q2

REPORT INFORMATION
  Report Type: Spontaneous
  Country: US (occurrence: US)
  Receive Date: 20210616
  Receipt Date: 20210616
  Transmission Date: 20210717
  Serious: No
  Sender: FDA-Public Use
  Company Number: US-TEIKOKU PHARMA USA-TPU2021-00629

PATIENT
  Sex: Female
  Weight: 97.61 kg

DRUGS (6)
  1. LIDOCAINE PATCH [Suspect]
     Active Substance: LIDOCAINE
     Indication: PAIN
     Route: 061
  2. LIDOCAINE. [Concomitant]
     Active Substance: LIDOCAINE
     Route: 061
  3. LIDODERM [Suspect]
     Active Substance: LIDOCAINE
     Indication: PAIN
     Route: 061
  4. LIDOCAINE. [Concomitant]
     Active Substance: LIDOCAINE
     Route: 061
  5. ASPIRIN. [Concomitant]
     Active Substance: ASPIRIN
  6. HYDROCODONE [Concomitant]
     Active Substance: HYDROCODONE
     Indication: PAIN

REACTIONS (1)
  - Malaise [Unknown]
